FAERS Safety Report 4577186-1 (Version None)
Quarter: 2005Q1

REPORT INFORMATION
  Report Type: 
  Country: None (occurrence: None)
  Receive Date: 20050207
  Receipt Date: 20050120
  Transmission Date: 20050727
  Serious: Yes (Hospitalization)
  Sender: FDA-Public Use
  Company Number: 2005-BP-00220NB

PATIENT
  Age: 63 Year
  Sex: Male

DRUGS (5)
  1. BI-SIFROL [Suspect]
     Indication: PARKINSONISM
     Dosage: 0.25 MG
     Route: 048
     Dates: start: 20050104, end: 20050106
  2. MENESIT (SINEMET) (TA) [Concomitant]
  3. NAUZELIN (DOMPERIDONE) (TA) [Concomitant]
  4. TANATRIL (IMIDAPRIL HYDROCHLORIDE) (TA) [Concomitant]
  5. ADALAT-CR (NIFEDIPINE)(TA) [Concomitant]

REACTIONS (3)
  - BLOOD PRESSURE INCREASED [None]
  - DEPRESSED LEVEL OF CONSCIOUSNESS [None]
  - DISORIENTATION [None]
